FAERS Safety Report 9285417 (Version 2)
Quarter: 2013Q4

REPORT INFORMATION
  Report Type: Spontaneous
  Country: US (occurrence: None)
  Receive Date: 20130507
  Receipt Date: 20131115
  Transmission Date: 20140711
  Serious: Yes (Life-Threatening, Hospitalization)
  Sender: FDA-Public Use
  Company Number: 2013US001523

PATIENT
  Age: 57 Year
  Sex: Male
  Weight: 90 kg

DRUGS (17)
  1. PONATINIB [Suspect]
     Indication: CHRONIC MYELOID LEUKAEMIA
     Route: 048
     Dates: start: 20130411, end: 20130416
  2. METFORMIN (METFORMIN) [Concomitant]
  3. LISINOPRIL (LISINOPRIL) [Concomitant]
  4. PROMETHAZINE (PROMETHAZINE) [Concomitant]
  5. GABAPENTIN (GABAPENTIN) [Concomitant]
  6. TUMS (CALCIUM CARBONATE) [Concomitant]
  7. ALBUTEROL (ABLUTEROL) [Concomitant]
  8. TOPROL (METOPROLOL SUCCINATE) [Concomitant]
  9. GILPIZIDE (GLIPIZIDE) [Concomitant]
  10. TEGRETOL (CARBAMAZEPINE) [Concomitant]
  11. MORPHINE [Concomitant]
  12. PRILOSEC [Concomitant]
  13. IBUPROFEN (IBUPROFEN) [Concomitant]
  14. ZOFRAN (ONDANSETRON) [Concomitant]
  15. NORMAL SALINE (NORMAL SALINE) [Concomitant]
  16. DECADRON (DEXAMETHASONE) [Concomitant]
  17. ANTIEMETICS AND ANTINAUSEANTS [Concomitant]

REACTIONS (10)
  - Acute myocardial infarction [None]
  - Pancreatitis [None]
  - Headache [None]
  - Blood glucose increased [None]
  - Blood sodium decreased [None]
  - Alanine aminotransferase increased [None]
  - Aspartate aminotransferase increased [None]
  - Shock [None]
  - Coronary artery thrombosis [None]
  - Insomnia [None]
